FAERS Safety Report 4388353-4 (Version None)
Quarter: 2004Q2

REPORT INFORMATION
  Report Type: 
  Country: None (occurrence: None)
  Receive Date: 20040625
  Receipt Date: 20040618
  Transmission Date: 20050107
  Serious: Yes (Other)
  Sender: FDA-Public Use
  Company Number: 2004219627US

PATIENT
  Sex: Female

DRUGS (4)
  1. PROVERA [Suspect]
  2. PREMARIN [Suspect]
  3. PREMPRO [Suspect]
  4. PREMPHASE (ESTROGENS CONJUGATED) [Suspect]

REACTIONS (1)
  - BREAST CANCER FEMALE [None]
